FAERS Safety Report 6338954-9 (Version None)
Quarter: 2009Q3

REPORT INFORMATION
  Report Type: 
  Country: None (occurrence: None)
  Receive Date: 20090903
  Receipt Date: 20090626
  Transmission Date: 20100115
  Serious: No
  Sender: FDA-Public Use
  Company Number: US-BAYER-200925167NA

PATIENT
  Age: 33 Year
  Sex: Female

DRUGS (1)
  1. YAZ [Suspect]
     Indication: INFERTILITY FEMALE

REACTIONS (4)
  - FEELING ABNORMAL [None]
  - MALAISE [None]
  - OFF LABEL USE [None]
  - VAGINAL DISCHARGE [None]
